FAERS Safety Report 4984572-4 (Version None)
Quarter: 2006Q2

REPORT INFORMATION
  Report Type: 
  Country: None (occurrence: None)
  Receive Date: 20060420
  Receipt Date: 20060411
  Transmission Date: 20061013
  Serious: Yes (Life-Threatening, Other)
  Sender: FDA-Public Use
  Company Number: PTWYE548811APR06

PATIENT
  Age: 70 Year
  Sex: Female

DRUGS (7)
  1. TAZOBAC (PIPERACILLIN/TAZOBACTAM, INJECTION) [Suspect]
     Indication: INFECTION
     Dosage: 13.5 G 1X PER 1 DAY INTRAVENOUS
     Route: 042
     Dates: start: 20060311, end: 20060311
  2. BETAHISTINE HYDROCHLORIDE (BETAHISTINE HYDROCHLORIDE) [Concomitant]
  3. PERINDOPRIL (PERINDOPRIL) [Concomitant]
  4. IBUPROFEN [Concomitant]
  5. NITROGLYCERIN [Concomitant]
  6. ENOXAPARIN SODIUM [Concomitant]
  7. OMEPRAZOLE [Concomitant]

REACTIONS (5)
  - ANAL SPHINCTER ATONY [None]
  - CARDIO-RESPIRATORY ARREST [None]
  - RASH [None]
  - URINARY INCONTINENCE [None]
  - VOMITING [None]
